FAERS Safety Report 8367918-9 (Version None)
Quarter: 2012Q2

REPORT INFORMATION
  Report Type: 
  Country: None (occurrence: None)
  Receive Date: 20120516
  Receipt Date: 20120503
  Transmission Date: 20120825
  Serious: Yes (Disabling, Other)
  Sender: FDA-Public Use
  Company Number: 2011MA002720

PATIENT
  Sex: Female
  Weight: 87.9978 kg

DRUGS (70)
  1. ADVAIR DISKUS 100/50 [Concomitant]
  2. ATENOLOL [Concomitant]
  3. CRESTOR [Concomitant]
  4. DIPHENOXYLATE [Concomitant]
  5. LEVAQUIN [Concomitant]
  6. LOTRONEX [Concomitant]
  7. METHYLPREDNISOLONE [Concomitant]
  8. NYSTATIN [Concomitant]
  9. OMEPRAZOLE [Concomitant]
  10. SENOKOT [Concomitant]
  11. URECHOLINE [Concomitant]
  12. ZEGERID [Concomitant]
  13. ZITHROMAX [Concomitant]
  14. ZYRTEC [Concomitant]
  15. CODEINE SULFATE [Concomitant]
  16. CLINDAMYCIN [Concomitant]
  17. FLONASE [Concomitant]
  18. GUAIFENESIN [Concomitant]
  19. PROMETHAZINE [Concomitant]
  20. ZOFRAN [Concomitant]
  21. METOCLOPRAMIDE [Suspect]
     Indication: IMPAIRED GASTRIC EMPTYING
     Dosage: 10 MG;QID;PO
     Route: 048
     Dates: start: 19990101, end: 20101201
  22. ALBUTEROL [Concomitant]
  23. AZITHROMYCIN [Concomitant]
  24. CORRECTOL [Concomitant]
  25. FLUCONAZOLE [Concomitant]
  26. GLYCERIN [Concomitant]
  27. HYDROXYZINE [Concomitant]
  28. NIASPAN [Concomitant]
  29. PRAVASTATIN [Concomitant]
  30. SEROQUEL [Concomitant]
  31. SINGULAIR [Concomitant]
  32. TRIMETHOBENZAMIDE HCL [Concomitant]
  33. VITAMIN D [Concomitant]
  34. ACETAMINOPHEN [Concomitant]
  35. AMITIZA [Concomitant]
  36. BENICAR [Concomitant]
  37. CHLORDIAZEPOXIDE [Concomitant]
  38. DICYCLOMINE [Concomitant]
  39. MIRALAX [Concomitant]
  40. PREVACID [Concomitant]
  41. PROPOXYPHENE HYDROCHLORIDE [Concomitant]
  42. CHANTIX [Concomitant]
  43. ERYTHROMYCIN [Concomitant]
  44. FORTICAL [Concomitant]
  45. HYOSCYAMINE [Concomitant]
  46. METRONIDAZOLE [Concomitant]
  47. ORPHENADRINE CITRATE [Concomitant]
  48. PAMINE [Concomitant]
  49. PAPAVERINE [Concomitant]
  50. BENZONATATE [Concomitant]
  51. CLARINEX [Concomitant]
  52. FLUOXETINE [Concomitant]
  53. PRILOSEC [Concomitant]
  54. SONATA [Concomitant]
  55. AMBIEN [Concomitant]
  56. CARAFATE [Concomitant]
  57. EPIPEN [Concomitant]
  58. HYDROCODONE BITARTRATE AND ACETAMINOPHEN [Concomitant]
  59. LISINOPRIL [Concomitant]
  60. LUNESTA [Concomitant]
  61. MILK OF MAGNESIA TAB [Concomitant]
  62. OMNICEF [Concomitant]
  63. TRAMADOL HYDROCHLORIDE [Concomitant]
  64. ULTRAM [Concomitant]
  65. VALTREX [Concomitant]
  66. AMOXICILLIN [Concomitant]
  67. ANUSOL [Concomitant]
  68. CHERATUSSIN [Concomitant]
  69. TUSSIONEX [Concomitant]
  70. ZOLPIDEM [Concomitant]

REACTIONS (30)
  - HAEMATEMESIS [None]
  - MUSCLE TWITCHING [None]
  - TREMOR [None]
  - EMOTIONAL DISORDER [None]
  - FAECES DISCOLOURED [None]
  - SINUSITIS [None]
  - RESTLESS LEGS SYNDROME [None]
  - EMOTIONAL DISTRESS [None]
  - WEIGHT DECREASED [None]
  - DYSKINESIA [None]
  - ANXIETY [None]
  - MENTAL DISORDER [None]
  - NAUSEA [None]
  - CONSTIPATION [None]
  - GASTROENTERITIS [None]
  - DIARRHOEA [None]
  - ECONOMIC PROBLEM [None]
  - NUCLEAR MAGNETIC RESONANCE IMAGING BRAIN ABNORMAL [None]
  - ACTIVITIES OF DAILY LIVING IMPAIRED [None]
  - RENAL CYST [None]
  - ABDOMINAL PAIN [None]
  - CEREBELLAR SYNDROME [None]
  - ASTERIXIS [None]
  - INJURY [None]
  - INSOMNIA [None]
  - GASTRECTOMY [None]
  - VOMITING [None]
  - GASTROOESOPHAGEAL REFLUX DISEASE [None]
  - DIVERTICULITIS [None]
  - OBSTRUCTION GASTRIC [None]
